FAERS Safety Report 20644264 (Version 1)
Quarter: 2022Q1

REPORT INFORMATION
  Report Type: Spontaneous
  Country: FR (occurrence: None)
  Receive Date: 20220328
  Receipt Date: 20220328
  Transmission Date: 20220423
  Serious: Yes (Hospitalization)
  Sender: FDA-Public Use
  Company Number: None

PATIENT
  Age: 75 Year
  Sex: Female
  Weight: 71.4 kg

DRUGS (3)
  1. PROPOFOL [Suspect]
     Active Substance: PROPOFOL
     Indication: General anaesthesia
     Route: 065
     Dates: start: 20220307, end: 20220307
  2. SUCCINYLCHOLINE IODIDE [Suspect]
     Active Substance: SUCCINYLCHOLINE IODIDE
     Indication: General anaesthesia
     Route: 041
     Dates: start: 20220307, end: 20220307
  3. SUFENTANIL [Suspect]
     Active Substance: SUFENTANIL
     Indication: General anaesthesia
     Route: 065
     Dates: start: 20220307, end: 20220307

REACTIONS (1)
  - Anaphylactic shock [Recovered/Resolved]

NARRATIVE: CASE EVENT DATE: 20220207
